FAERS Safety Report 20005980 (Version 1)
Quarter: 2021Q4

REPORT INFORMATION
  Report Type: Spontaneous
  Country: US (occurrence: US)
  Receive Date: 20211028
  Receipt Date: 20211028
  Transmission Date: 20220303
  Serious: No
  Sender: FDA-Public Use
  Company Number: US-SA-SAC20211026000388

PATIENT
  Sex: Female

DRUGS (3)
  1. DUPIXENT [Suspect]
     Active Substance: DUPILUMAB
     Indication: Asthma
     Dosage: 300 MG, QOW
     Route: 058
     Dates: start: 20210518
  2. VALSARTAN [Concomitant]
     Active Substance: VALSARTAN
  3. CHLORTHALIDONE [Concomitant]
     Active Substance: CHLORTHALIDONE

REACTIONS (2)
  - Eye pain [Not Recovered/Not Resolved]
  - Product use issue [Unknown]
